FAERS Safety Report 7776887-1 (Version None)
Quarter: 2011Q3

REPORT INFORMATION
  Report Type: 
  Country: None (occurrence: None)
  Receive Date: 20110923
  Receipt Date: 20110923
  Transmission Date: 20111222
  Serious: No
  Sender: FDA-Public Use
  Company Number: None

PATIENT
  Age: 70 Year
  Sex: Male
  Weight: 136.3 kg

DRUGS (1)
  1. TAPENTADOL [Suspect]
     Indication: PAIN
     Dosage: 100 MG PRN PO
     Route: 048
     Dates: start: 20110429, end: 20110513

REACTIONS (5)
  - TREMOR [None]
  - HISTAMINE ABNORMAL [None]
  - DRUG INTOLERANCE [None]
  - RASH [None]
  - DRUG INEFFECTIVE [None]
